FAERS Safety Report 10754086 (Version 1)
Quarter: 2015Q1

REPORT INFORMATION
  Report Type: Spontaneous
  Country: GB (occurrence: GB)
  Receive Date: 20150202
  Receipt Date: 20150202
  Transmission Date: 20150721
  Serious: Yes (Other)
  Sender: FDA-Public Use
  Company Number: GB-BEH-2014043790

PATIENT
  Age: 33 Year
  Sex: Female
  Weight: 79.2 kg

DRUGS (5)
  1. PREDNISOLONE. [Suspect]
     Active Substance: PREDNISOLONE
     Dosage: REDUCED TO 27.5MG ALTERNATE DAYS TO CONTINUE TO WEAN BY 2.5MG EVERY ?4WKS (AS REPORTED)
     Route: 048
  2. HIZENTRA [Suspect]
     Active Substance: HUMAN IMMUNOGLOBULIN G
     Dosage: MAINTENANCE SCIG TREATMENT WAS STARTED WITH A DOSAGE OF 0.25MG/KG/WK (20G/WK, 100MLS HIZENTRA)
     Route: 058
  3. PREDNISOLONE. [Suspect]
     Active Substance: PREDNISOLONE
     Indication: MYASTHENIA GRAVIS
     Route: 048
  4. PYRIDOSTIGMINE [Suspect]
     Active Substance: PYRIDOSTIGMINE
     Indication: MYASTHENIA GRAVIS
     Dosage: VARIABLE
     Route: 048
  5. HIZENTRA [Suspect]
     Active Substance: HUMAN IMMUNOGLOBULIN G
     Indication: MYASTHENIA GRAVIS
     Dosage: 16MG (80ML) TWICE WEEKLY TO PROVIDE A CUMULATIVE LOADING DOSE OF 1.8G/KG OVER 4 WEEKS; FIRST DOSE
     Route: 058
     Dates: start: 20140530

REACTIONS (3)
  - Photophobia [Unknown]
  - Meningitis aseptic [Unknown]
  - Headache [Unknown]

NARRATIVE: CASE EVENT DATE: 20140602
